FAERS Safety Report 24843281 (Version 1)
Quarter: 2025Q1

REPORT INFORMATION
  Report Type: Report from Study
  Country: US (occurrence: US)
  Receive Date: 20250115
  Receipt Date: 20250115
  Transmission Date: 20250408
  Serious: No
  Sender: HRA PHARMA
  Company Number: US-ORG100014127-2023001045

PATIENT
  Age: 75 Year
  Sex: Female

DRUGS (23)
  1. LYSODREN [Suspect]
     Active Substance: MITOTANE
     Indication: Adrenal gland cancer
     Dosage: 1 TABLETS THREE TIMES DAILY FOR 1 WEEK
     Route: 048
     Dates: start: 20231014
  2. LYSODREN [Suspect]
     Active Substance: MITOTANE
     Indication: Adrenal gland cancer
     Dosage: 2 TABLETS THREE TIMES DAILY
     Route: 048
  3. LYSODREN [Suspect]
     Active Substance: MITOTANE
     Indication: Adrenal gland cancer
     Dosage: 3 TAB 3 TIMES DAILY
     Route: 048
  4. LYSODREN [Suspect]
     Active Substance: MITOTANE
     Indication: Adrenal gland cancer
     Dosage: 1 TAB MORNING, 2 TAB AT MIDDAY AND 2 TAB IN AFTERNOON
     Route: 048
  5. albuterol hfa inhalation aerosol [Concomitant]
     Indication: Product used for unknown indication
  6. AllerEase 180 mg [Concomitant]
     Indication: Product used for unknown indication
  7. ASPIRIN TAB 81MG EC [Concomitant]
     Indication: Product used for unknown indication
  8. AZATHIOPRINE POWDER [Concomitant]
     Indication: Product used for unknown indication
  9. CALCIUM/D TAB 500-200 [Concomitant]
     Indication: Product used for unknown indication
  10. Flonase Allergy SPR 50MCG [Concomitant]
     Indication: Product used for unknown indication
  11. HYDROCODONE POWDER BITARTRA [Concomitant]
     Indication: Product used for unknown indication
  12. LOVASTATIN [Concomitant]
     Active Substance: LOVASTATIN
     Indication: Product used for unknown indication
  13. metoprolol tartrate TABLET 50MG [Concomitant]
     Indication: Product used for unknown indication
  14. MONTELUKAST TABLET 10MG [Concomitant]
     Indication: Product used for unknown indication
  15. OMEGA-3 CAPSULE 300MG [Concomitant]
     Indication: Product used for unknown indication
  16. OMEPRAZOLE SODIUM [Concomitant]
     Active Substance: OMEPRAZOLE SODIUM
     Indication: Product used for unknown indication
  17. ONDANSETRON TABLET 4MG [Concomitant]
     Indication: Product used for unknown indication
  18. RAMIPRIL [Concomitant]
     Active Substance: RAMIPRIL
     Indication: Product used for unknown indication
  19. SPIRONOLACT TABLET 50MG [Concomitant]
     Indication: Product used for unknown indication
  20. VITAMIN D3 CAPSULE 1000UNIT [Concomitant]
     Indication: Product used for unknown indication
  21. ALIVE WOMENS CHW 50 [Concomitant]
     Indication: Product used for unknown indication
  22. PRAVASTATIN TAB 40MG [Concomitant]
     Indication: Product used for unknown indication
  23. DEXAMETHASON TAB 0.75MG [Concomitant]
     Indication: Product used for unknown indication

REACTIONS (4)
  - Asthma [Unknown]
  - Dizziness [Not Recovered/Not Resolved]
  - Decreased appetite [Not Recovered/Not Resolved]
  - Fatigue [Unknown]

NARRATIVE: CASE EVENT DATE: 20231021
